FAERS Safety Report 10661738 (Version 1)
Quarter: 2014Q4

REPORT INFORMATION
  Report Type: Spontaneous
  Country: GB (occurrence: GB)
  Receive Date: 20141218
  Receipt Date: 20141218
  Transmission Date: 20150529
  Serious: Yes (Other)
  Sender: FDA-Public Use
  Company Number: GB-TEVA-529287ISR

PATIENT
  Age: 11 Year
  Sex: Male
  Weight: 54.1 kg

DRUGS (3)
  1. DESMOPRESSIN [Concomitant]
     Active Substance: DESMOPRESSIN
  2. IRINOTECAN [Suspect]
     Active Substance: IRINOTECAN
     Indication: CYTOREDUCTIVE SURGERY
     Route: 042
     Dates: start: 20141128, end: 20141128
  3. POTASSIUM [Concomitant]
     Active Substance: POTASSIUM

REACTIONS (5)
  - Hyperhidrosis [Recovered/Resolved]
  - Cholinergic syndrome [Recovered/Resolved]
  - Urinary incontinence [Recovered/Resolved]
  - Dizziness [Recovered/Resolved]
  - Malaise [Recovered/Resolved]

NARRATIVE: CASE EVENT DATE: 20141128
